FAERS Safety Report 8609517-7 (Version None)
Quarter: 2012Q3

REPORT INFORMATION
  Report Type: 
  Country: None (occurrence: None)
  Receive Date: 20120423
  Receipt Date: 20090306
  Transmission Date: 20120928
  Serious: Yes (Other)
  Sender: FDA-Public Use
  Company Number: PHEH2009US02390

PATIENT
  Sex: Female

DRUGS (1)
  1. FEMARA [Suspect]
     Dates: start: 20040101

REACTIONS (4)
  - THROMBOSIS [None]
  - MYOCARDIAL INFARCTION [None]
  - HYPERTENSION [None]
  - BLOOD CHOLESTEROL INCREASED [None]
